FAERS Safety Report 18473897 (Version 1)
Quarter: 2020Q4

REPORT INFORMATION
  Report Type: Spontaneous
  Country: IT (occurrence: IT)
  Receive Date: 20201106
  Receipt Date: 20201106
  Transmission Date: 20210114
  Serious: Yes (Hospitalization)
  Sender: FDA-Public Use
  Company Number: IT-PFIZER INC-2020428282

PATIENT
  Age: 60 Year
  Sex: Female

DRUGS (1)
  1. TAVOR (LORAZEPAM) [Suspect]
     Active Substance: LORAZEPAM
     Dosage: 1 DF, SINGLE
     Route: 048
     Dates: start: 20180515, end: 20180515

REACTIONS (6)
  - Miosis [Recovering/Resolving]
  - Respiratory rate decreased [Recovering/Resolving]
  - Alcohol abuse [Recovering/Resolving]
  - Drug abuse [Recovering/Resolving]
  - Speech disorder [Recovering/Resolving]
  - Sopor [Recovering/Resolving]

NARRATIVE: CASE EVENT DATE: 20180515
